FAERS Safety Report 5375795-3 (Version None)
Quarter: 2007Q2

REPORT INFORMATION
  Report Type: 
  Country: None (occurrence: None)
  Receive Date: 20070629
  Receipt Date: 20070625
  Transmission Date: 20071010
  Serious: Yes (Hospitalization)
  Sender: FDA-Public Use
  Company Number: CA-ABBOTT-07P-028-0369593-00

PATIENT
  Sex: Female
  Weight: 76.272 kg

DRUGS (1)
  1. HUMIRA [Suspect]
     Indication: RHEUMATOID ARTHRITIS
     Route: 058
     Dates: start: 20070510

REACTIONS (8)
  - ANOREXIA [None]
  - CONTUSION [None]
  - DYSPHONIA [None]
  - FLAT AFFECT [None]
  - HIP FRACTURE [None]
  - PAIN [None]
  - PROCEDURAL SITE REACTION [None]
  - SOMNOLENCE [None]
